FAERS Safety Report 4373371-2 (Version None)
Quarter: 2004Q2

REPORT INFORMATION
  Report Type: 
  Country: None (occurrence: None)
  Receive Date: 20040603
  Receipt Date: 20040525
  Transmission Date: 20050107
  Serious: Yes (Death)
  Sender: FDA-Public Use
  Company Number: US-JNJFOC-20040405705

PATIENT
  Age: 73 Year
  Sex: Male
  Weight: 66.2252 kg

DRUGS (3)
  1. DURAGESIC [Suspect]
     Indication: PAIN
     Dosage: 50 UG/HR, 1 IN 72 HOUR, TRANSDERMAL
     Route: 062
     Dates: start: 20040315, end: 20040413
  2. NEURONTIN (GABAPENTIN) TABLETS [Concomitant]
  3. ATIVAN [Concomitant]

REACTIONS (1)
  - DEATH [None]
